FAERS Safety Report 16804825 (Version 1)
Quarter: 2019Q3

REPORT INFORMATION
  Report Type: Spontaneous
  Country: US (occurrence: US)
  Receive Date: 20190724
  Receipt Date: 20190724
  Transmission Date: 20191005
  Serious: Yes (Hospitalization)
  Sender: FDA-Public Use
  Company Number: None

PATIENT
  Age: 55 Year
  Sex: Male

DRUGS (2)
  1. HUMIRA [Suspect]
     Active Substance: ADALIMUMAB
     Indication: PSORIASIS
     Dosage: ?          OTHER ROUTE:INJ?
     Dates: start: 20190125
  2. STELARA [Concomitant]
     Active Substance: USTEKINUMAB

REACTIONS (3)
  - Product dose omission [None]
  - Chest pain [None]
  - Device malfunction [None]

NARRATIVE: CASE EVENT DATE: 20190721
